FAERS Safety Report 11424467 (Version 1)
Quarter: 2015Q3

REPORT INFORMATION
  Report Type: Spontaneous
  Country: US (occurrence: US)
  Receive Date: 20150827
  Receipt Date: 20150827
  Transmission Date: 20151125
  Serious: No
  Sender: FDA-Public Use
  Company Number: US-SA-2015SA024498

PATIENT
  Age: 87 Year
  Sex: Female

DRUGS (2)
  1. MULTAQ [Suspect]
     Active Substance: DRONEDARONE
     Route: 065
     Dates: start: 201502
  2. MULTAQ [Suspect]
     Active Substance: DRONEDARONE
     Route: 065
     Dates: end: 201502

REACTIONS (1)
  - Heart rate decreased [Unknown]
